FAERS Safety Report 7079184-5 (Version None)
Quarter: 2010Q4

REPORT INFORMATION
  Report Type: 
  Country: None (occurrence: None)
  Receive Date: 20101102
  Receipt Date: 20101026
  Transmission Date: 20110411
  Serious: Yes (Death)
  Sender: FDA-Public Use
  Company Number: A0890052A

PATIENT
  Sex: Female

DRUGS (2)
  1. REQUIP [Suspect]
     Dosage: 1MG UNKNOWN
     Route: 048
     Dates: start: 20091121
  2. VENTOLIN [Suspect]
     Route: 055
     Dates: start: 20091121

REACTIONS (1)
  - DEATH [None]
